FAERS Safety Report 6448355-0 (Version None)
Quarter: 2009Q4

REPORT INFORMATION
  Report Type: 
  Country: None (occurrence: None)
  Receive Date: 20091120
  Receipt Date: 20091105
  Transmission Date: 20100525
  Serious: Yes (Hospitalization)
  Sender: FDA-Public Use
  Company Number: PHHY2009CH48346

PATIENT
  Sex: Female

DRUGS (3)
  1. LEPONEX [Suspect]
     Dosage: 25 MG, QD
     Dates: start: 20090729, end: 20090803
  2. ASPIRIN [Concomitant]
     Dosage: 100 MG, QD
     Dates: start: 20070101
  3. LAMICTAL [Concomitant]
     Dosage: 100 MG, QD
     Dates: start: 20090627

REACTIONS (2)
  - FALL [None]
  - PLEUROTHOTONUS [None]
